FAERS Safety Report 15158016 (Version 2)
Quarter: 2018Q3

REPORT INFORMATION
  Report Type: Spontaneous
  Country: US (occurrence: US)
  Receive Date: 20180718
  Receipt Date: 20180810
  Transmission Date: 20181010
  Serious: Yes (Hospitalization)
  Sender: FDA-Public Use
  Company Number: US-PFIZER INC-2018287091

PATIENT
  Age: 76 Year
  Sex: Male

DRUGS (3)
  1. CHANTIX [Suspect]
     Active Substance: VARENICLINE TARTRATE
     Indication: SMOKING CESSATION THERAPY
     Dosage: 0.5 MG, 2X/DAY (1 WEEK MORNING AND EVENING)
     Dates: start: 20180702
  2. CHANTIX [Suspect]
     Active Substance: VARENICLINE TARTRATE
     Dosage: 1 MG, ONCE DAILY WITH FOOD
  3. CHANTIX [Suspect]
     Active Substance: VARENICLINE TARTRATE
     Dosage: 1 MG, 2X/DAY (1 WEEK MORNING AND EVENING)

REACTIONS (6)
  - Fatigue [Not Recovered/Not Resolved]
  - Laziness [Not Recovered/Not Resolved]
  - Cerebrovascular accident [Unknown]
  - Asthenia [Not Recovered/Not Resolved]
  - Dizziness [Unknown]
  - Balance disorder [Unknown]

NARRATIVE: CASE EVENT DATE: 20180702
